FAERS Safety Report 5473984-0 (Version None)
Quarter: 2007Q3

REPORT INFORMATION
  Report Type: 
  Country: None (occurrence: None)
  Receive Date: 20070830
  Receipt Date: 20070301
  Transmission Date: 20080115
  Serious: Yes (Other)
  Sender: FDA-Public Use
  Company Number: 237068

PATIENT
  Age: 18 Year
  Sex: Female

DRUGS (3)
  1. XOLAIR [Suspect]
     Indication: ASTHMA
     Dosage: Q2W, SUBCUTANEOUS
     Route: 058
  2. ADVAIR DISKUS 100/50 [Concomitant]
  3. RHINOCORT [Concomitant]

REACTIONS (1)
  - WRIST FRACTURE [None]
